FAERS Safety Report 24038587 (Version 2)
Quarter: 2024Q3

REPORT INFORMATION
  Report Type: Spontaneous
  Country: US (occurrence: US)
  Receive Date: 20240702
  Receipt Date: 20240709
  Transmission Date: 20241017
  Serious: No
  Sender: ROCHE
  Company Number: US-ROCHE-3573671

PATIENT
  Sex: Male

DRUGS (3)
  1. ACTEMRA [Suspect]
     Active Substance: TOCILIZUMAB
     Indication: Interstitial lung disease
     Dosage: STRENGTH: 162MG/0.9M
     Route: 058
     Dates: start: 20240515
  2. ACTEMRA [Suspect]
     Active Substance: TOCILIZUMAB
     Indication: Idiopathic interstitial pneumonia
  3. MYCOPHENOLATE MOFETIL [Concomitant]
     Active Substance: MYCOPHENOLATE MOFETIL

REACTIONS (6)
  - Product dose omission issue [Unknown]
  - Device mechanical issue [Unknown]
  - Device issue [Unknown]
  - Device defective [Unknown]
  - Accidental exposure to product [Unknown]
  - No adverse event [Unknown]

NARRATIVE: CASE EVENT DATE: 20240528
